FAERS Safety Report 7088678-8 (Version None)
Quarter: 2010Q4

REPORT INFORMATION
  Report Type: 
  Country: None (occurrence: None)
  Receive Date: 20101108
  Receipt Date: 20100918
  Transmission Date: 20110411
  Serious: Yes (Death)
  Sender: FDA-Public Use
  Company Number: DE-GENZYME-FLUD-1000237

PATIENT

DRUGS (7)
  1. FLUDARA [Suspect]
     Indication: STEM CELL TRANSPLANT
     Dosage: 40 MG/M2, UNK
  2. FLUDARA [Suspect]
     Indication: THERAPEUTIC PROCEDURE
  3. THIOTEPA [Suspect]
     Indication: STEM CELL TRANSPLANT
     Dosage: 5 MG/KG, UNK
  4. THIOTEPA [Suspect]
     Indication: THERAPEUTIC PROCEDURE
  5. CYCLOSPORINE [Suspect]
     Indication: PROPHYLAXIS AGAINST GRAFT VERSUS HOST DISEASE
  6. METHOTREXATE [Suspect]
     Indication: PROPHYLAXIS AGAINST GRAFT VERSUS HOST DISEASE
  7. UNKNOWN MEDICATION (UNCODEABLE ^UNCLASSIFIABLE^) [Suspect]
     Indication: PROPHYLAXIS AGAINST GRAFT VERSUS HOST DISEASE

REACTIONS (2)
  - MULTI-ORGAN FAILURE [None]
  - VENOOCCLUSIVE DISEASE [None]
